FAERS Safety Report 4369642-6 (Version None)
Quarter: 2004Q2

REPORT INFORMATION
  Report Type: 
  Country: None (occurrence: None)
  Receive Date: 20040527
  Receipt Date: 20040512
  Transmission Date: 20050107
  Serious: Yes (Other)
  Sender: FDA-Public Use
  Company Number: USA040567337

PATIENT
  Age: 65 Year
  Sex: Female
  Weight: 91 kg

DRUGS (4)
  1. HUMULIN N [Suspect]
     Dosage: 27 U DAY
     Dates: start: 19990101
  2. ZOCOR [Concomitant]
  3. GLUCOPHAGE [Concomitant]
  4. ACTOS (PIOGLITAZONE) [Concomitant]

REACTIONS (15)
  - ASTHENIA [None]
  - BLOOD GLUCOSE DECREASED [None]
  - DIARRHOEA [None]
  - FALL [None]
  - FEELING ABNORMAL [None]
  - IMPAIRED DRIVING ABILITY [None]
  - MOVEMENT DISORDER [None]
  - MUSCLE CRAMP [None]
  - MYOCARDIAL INFARCTION [None]
  - NAUSEA [None]
  - PHARMACEUTICAL PRODUCT COMPLAINT [None]
  - RENAL DISORDER [None]
  - THYROID DISORDER [None]
  - TREMOR [None]
  - VOMITING [None]
